FAERS Safety Report 8949109 (Version 2)
Quarter: 2012Q4

REPORT INFORMATION
  Report Type: 
  Country: FR (occurrence: FR)
  Receive Date: 20121206
  Receipt Date: 20121219
  Transmission Date: 20130627
  Serious: Yes (Hospitalization, Other)
  Sender: FDA-Public Use
  Company Number: FR-SANOFI-AVENTIS-2012SA088283

PATIENT
  Age: 69 Year
  Sex: Female

DRUGS (4)
  1. FUROSEMIDE [Suspect]
     Indication: CARDIOMYOPATHY
     Dosage: strength: 40mg
     Route: 048
  2. COVERSYL /FRA/ [Concomitant]
  3. METFORMIN HYDROCHLORIDE [Concomitant]
     Indication: TYPE 2 DIABETES MELLITUS
     Dates: start: 20100324, end: 20111102
  4. SITAGLIPTIN PHOSPHATE [Concomitant]
     Indication: TYPE 2 DIABETES MELLITUS
     Dates: start: 20100324, end: 20111102

REACTIONS (1)
  - Nephrolithiasis [Recovered/Resolved]
